FAERS Safety Report 4450733-6 (Version None)
Quarter: 2004Q3

REPORT INFORMATION
  Report Type: 
  Country: None (occurrence: None)
  Receive Date: 20040914
  Receipt Date: 20040914
  Transmission Date: 20050211
  Serious: Yes (Other)
  Sender: FDA-Public Use
  Company Number: None

PATIENT
  Age: 71 Year
  Sex: Female
  Weight: 84.8226 kg

DRUGS (7)
  1. CARTIA XT [Suspect]
     Indication: HYPERTENSION
     Dosage: 300 MG DAY
  2. HYDROCHLOROTHIAZIDE [Concomitant]
  3. ATENOLOL SO [Concomitant]
  4. SYNTHROID [Concomitant]
  5. LIPITOR [Concomitant]
  6. ASPIRIN [Concomitant]
  7. VALIUM [Concomitant]

REACTIONS (3)
  - PHARMACEUTICAL PRODUCT COMPLAINT [None]
  - RASH GENERALISED [None]
  - SCAR [None]
